FAERS Safety Report 12647236 (Version 1)
Quarter: 2016Q3

REPORT INFORMATION
  Report Type: Spontaneous
  Country: US (occurrence: None)
  Receive Date: 20160811
  Receipt Date: 20160811
  Transmission Date: 20161109
  Serious: Yes (Life-Threatening)
  Sender: FDA-Public Use
  Company Number: None

PATIENT
  Age: 45 Year
  Sex: Female
  Weight: 58.06 kg

DRUGS (2)
  1. MULTIHANCE [Suspect]
     Active Substance: GADOBENATE DIMEGLUMINE
     Indication: NUCLEAR MAGNETIC RESONANCE IMAGING
     Route: 042
     Dates: start: 20160805, end: 20160805
  2. MULTIHANCE [Suspect]
     Active Substance: GADOBENATE DIMEGLUMINE
     Indication: SCAN WITH CONTRAST
     Route: 042
     Dates: start: 20160805, end: 20160805

REACTIONS (9)
  - Dyspnoea [None]
  - Swelling face [None]
  - Blood pressure decreased [None]
  - Loss of consciousness [None]
  - Anaphylactic shock [None]
  - Pharyngeal oedema [None]
  - Urticaria [None]
  - Nausea [None]
  - Erythema [None]

NARRATIVE: CASE EVENT DATE: 20160805
